FAERS Safety Report 16807669 (Version 1)
Quarter: 2019Q3

REPORT INFORMATION
  Report Type: Spontaneous
  Country: GB (occurrence: GB)
  Receive Date: 20190914
  Receipt Date: 20190914
  Transmission Date: 20191005
  Serious: Yes (Other)
  Sender: FDA-Public Use
  Company Number: GB-JNJFOC-20190910049

PATIENT
  Age: 12 Year
  Sex: Male

DRUGS (1)
  1. PARACETAMOL [Suspect]
     Active Substance: ACETAMINOPHEN
     Indication: FOETAL EXPOSURE DURING PREGNANCY
     Dosage: UNK
     Route: 065

REACTIONS (6)
  - Foetal exposure during pregnancy [Unknown]
  - Vomiting [Unknown]
  - Migraine [Unknown]
  - Premature baby [Unknown]
  - Malaise [Unknown]
  - Drug hypersensitivity [Unknown]
